FAERS Safety Report 6030372-6 (Version None)
Quarter: 2009Q1

REPORT INFORMATION
  Report Type: 
  Country: None (occurrence: None)
  Receive Date: 20090107
  Receipt Date: 20080801
  Transmission Date: 20090719
  Serious: No
  Sender: FDA-Public Use
  Company Number: US-BAYER-200813288BCC

PATIENT
  Age: 34 Year
  Sex: Male
  Weight: 94 kg

DRUGS (2)
  1. ALEVE [Suspect]
     Indication: BACK PAIN
     Dosage: TOTAL DAILY DOSE: 440 MG  UNIT DOSE: 440 MG
     Route: 048
     Dates: start: 20080731
  2. MULTI-VITAMINS [Concomitant]

REACTIONS (2)
  - RASH [None]
  - URTICARIA [None]
